FAERS Safety Report 18243308 (Version 2)
Quarter: 2024Q1

REPORT INFORMATION
  Report Type: Spontaneous
  Country: CA (occurrence: None)
  Receive Date: 20200908
  Receipt Date: 20240227
  Transmission Date: 20240409
  Serious: Yes (Other)
  Sender: FDA-Public Use
  Company Number: 2020SF11655

PATIENT
  Age: 53 Year
  Sex: Female

DRUGS (20)
  1. ROSUVASTATIN CALCIUM [Suspect]
     Active Substance: ROSUVASTATIN CALCIUM
     Indication: Product used for unknown indication
     Route: 048
  2. ENTOCORT [Suspect]
     Active Substance: BUDESONIDE
     Indication: Product used for unknown indication
     Route: 048
  3. ACEBUTOLOL [Suspect]
     Active Substance: ACEBUTOLOL
     Indication: Product used for unknown indication
  4. HUMIRA [Suspect]
     Active Substance: ADALIMUMAB
     Indication: Crohn^s disease
     Route: 058
  5. AMLODIPINE [Suspect]
     Active Substance: AMLODIPINE BESYLATE
     Indication: Product used for unknown indication
  6. BOTULINUM TOXIN TYPE A [Suspect]
     Active Substance: BOTULINUM TOXIN TYPE A
     Indication: Migraine
     Dosage: EVERY 3 MONTHS
     Route: 058
  7. BUPROPION [Suspect]
     Active Substance: BUPROPION
     Indication: Product used for unknown indication
  8. DEXLANSOPRAZOLE [Suspect]
     Active Substance: DEXLANSOPRAZOLE
     Indication: Product used for unknown indication
  9. DIENESTROL [Suspect]
     Active Substance: DIENESTROL
     Indication: Product used for unknown indication
  10. ERGOCALCIFEROL [Suspect]
     Active Substance: ERGOCALCIFEROL
     Indication: Product used for unknown indication
     Dosage: 100 INTERNATIONAL UNIT DAILY
  11. FENTANYL [Suspect]
     Active Substance: FENTANYL\FENTANYL CITRATE
     Indication: Product used for unknown indication
  12. INFLIXIMAB [Suspect]
     Active Substance: INFLIXIMAB
     Indication: Product used for unknown indication
  13. INFLIXIMAB [Suspect]
     Active Substance: INFLIXIMAB
     Indication: Crohn^s disease
  14. METHOTREXATE [Suspect]
     Active Substance: METHOTREXATE
     Indication: Product used for unknown indication
  15. MESALAMINE [Suspect]
     Active Substance: MESALAMINE
     Indication: Product used for unknown indication
  16. PREDNISONE [Suspect]
     Active Substance: PREDNISONE
     Indication: Product used for unknown indication
  17. ALBUTEROL [Suspect]
     Active Substance: ALBUTEROL
     Indication: Product used for unknown indication
     Dosage: UNK
  18. SUMATRIPTAN SUCCINATE [Suspect]
     Active Substance: SUMATRIPTAN SUCCINATE
     Indication: Product used for unknown indication
     Dosage: 20.0MG UNKNOWN
     Route: 045
  19. TELMISARTAN [Suspect]
     Active Substance: TELMISARTAN
     Indication: Product used for unknown indication
  20. VENLAFAXINE [Suspect]
     Active Substance: VENLAFAXINE HYDROCHLORIDE
     Indication: Product used for unknown indication
     Dosage: DAILY

REACTIONS (11)
  - Arthritis [Unknown]
  - Asthma [Unknown]
  - Chronic kidney disease [Unknown]
  - Depression [Unknown]
  - Drug intolerance [Unknown]
  - Drug specific antibody [Unknown]
  - Endometriosis [Unknown]
  - Hypertension [Unknown]
  - Migraine [Unknown]
  - Psoriasis [Unknown]
  - Drug ineffective [Unknown]
